FAERS Safety Report 15628343 (Version 1)
Quarter: 2018Q4

REPORT INFORMATION
  Report Type: Spontaneous
  Country: US (occurrence: US)
  Receive Date: 20181116
  Receipt Date: 20181116
  Transmission Date: 20190205
  Serious: No
  Sender: FDA-Public Use
  Company Number: US-MYLANLABS-2018M1085005

PATIENT
  Age: 87 Year
  Sex: Female

DRUGS (3)
  1. TRAMADOL HYDROCHLORIDE EXTENDED-RELEASE TABLETS, USP [Suspect]
     Active Substance: TRAMADOL HYDROCHLORIDE
     Dosage: 200 MG, UNK
     Route: 048
     Dates: start: 20181010
  2. TRAMADOL HYDROCHLORIDE EXTENDED-RELEASE TABLETS, USP [Suspect]
     Active Substance: TRAMADOL HYDROCHLORIDE
     Dosage: 200 MG, UNK
     Route: 048
     Dates: start: 20181010
  3. TRAMADOL HYDROCHLORIDE EXTENDED-RELEASE TABLETS, USP [Suspect]
     Active Substance: TRAMADOL HYDROCHLORIDE
     Indication: PAIN
     Dosage: 200 MG, QD
     Route: 048
     Dates: start: 2018

REACTIONS (3)
  - Drug ineffective [Unknown]
  - Overdose [Unknown]
  - No adverse event [Unknown]

NARRATIVE: CASE EVENT DATE: 2018
